FAERS Safety Report 8420246-5 (Version None)
Quarter: 2012Q2

REPORT INFORMATION
  Report Type: 
  Country: None (occurrence: None)
  Receive Date: 20120607
  Receipt Date: 20120601
  Transmission Date: 20120825
  Serious: Yes (Death, Other)
  Sender: FDA-Public Use
  Company Number: US-PFIZER INC-2012132584

PATIENT
  Sex: Female

DRUGS (1)
  1. LYRICA [Suspect]
     Indication: FIBROMYALGIA
     Dosage: UNK

REACTIONS (8)
  - SUICIDE ATTEMPT [None]
  - ANGER [None]
  - DYSARTHRIA [None]
  - PERSONALITY CHANGE [None]
  - DYSGRAPHIA [None]
  - SPEECH DISORDER [None]
  - COMPLETED SUICIDE [None]
  - SOMNOLENCE [None]
